FAERS Safety Report 8424483-5 (Version None)
Quarter: 2012Q2

REPORT INFORMATION
  Report Type: 
  Country: None (occurrence: None)
  Receive Date: 20120610
  Receipt Date: 20120531
  Transmission Date: 20120825
  Serious: Yes (Other)
  Sender: FDA-Public Use
  Company Number: DE-BRISTOL-MYERS SQUIBB COMPANY-16429052

PATIENT
  Age: 62 Year
  Sex: Male
  Weight: 89 kg

DRUGS (4)
  1. ABILIFY [Suspect]
     Indication: SCHIZOPHRENIA, RESIDUAL TYPE
     Dosage: REDUCED TO 20MG
     Route: 048
     Dates: start: 20110124
  2. RISPERDAL CONSTA [Suspect]
     Indication: SCHIZOPHRENIA, RESIDUAL TYPE
     Route: 030
     Dates: start: 20101222, end: 20110808
  3. PERAZINE DIMALONATE [Suspect]
     Indication: SCHIZOPHRENIA, RESIDUAL TYPE
     Dates: start: 20110307, end: 20110404
  4. HALDOL [Suspect]
     Indication: SCHIZOPHRENIA, RESIDUAL TYPE
     Dates: start: 20100902

REACTIONS (4)
  - PSYCHOTIC DISORDER [None]
  - DRUG LEVEL INCREASED [None]
  - GAMMA-GLUTAMYLTRANSFERASE INCREASED [None]
  - ASPARTATE AMINOTRANSFERASE INCREASED [None]
